FAERS Safety Report 4430939-2 (Version None)
Quarter: 2004Q3

REPORT INFORMATION
  Report Type: 
  Country: None (occurrence: None)
  Receive Date: 20040823
  Receipt Date: 20040701
  Transmission Date: 20050211
  Serious: Yes (Hospitalization, Other)
  Sender: FDA-Public Use
  Company Number: US-MERCK-0407USA00165

PATIENT
  Age: 73 Year
  Sex: Male

DRUGS (10)
  1. ADIPIC ACID [Concomitant]
     Indication: DEPRESSION
     Route: 065
     Dates: start: 20010101
  2. PROSCAR [Concomitant]
     Indication: BENIGN PROSTATIC HYPERPLASIA
     Route: 048
     Dates: start: 20000101
  3. NEURONTIN [Concomitant]
     Indication: DEPRESSION
     Route: 065
     Dates: start: 20010101
  4. SYNTHROID [Concomitant]
     Route: 065
     Dates: start: 19790101
  5. LORAZEPAM [Concomitant]
     Indication: DEPRESSION
     Route: 065
     Dates: start: 20010101
  6. PROVIGIL [Concomitant]
     Indication: DEPRESSION
     Route: 065
     Dates: start: 19990101
  7. FLOMAX [Concomitant]
     Indication: BENIGN PROSTATIC HYPERPLASIA
     Route: 065
     Dates: start: 19990101, end: 20040101
  8. MACROBID [Concomitant]
     Route: 065
  9. VIOXX [Suspect]
     Indication: LOCALISED OSTEOARTHRITIS
     Route: 048
     Dates: start: 20010101, end: 20021119
  10. VIOXX [Suspect]
     Route: 048
     Dates: start: 20021101

REACTIONS (21)
  - ARTHRALGIA [None]
  - ASTHENIA [None]
  - BENIGN PROSTATIC HYPERPLASIA [None]
  - CARDIAC FAILURE CONGESTIVE [None]
  - CELLULITIS [None]
  - DIABETES MELLITUS [None]
  - DIARRHOEA [None]
  - ERECTILE DYSFUNCTION [None]
  - FAECAL OCCULT BLOOD POSITIVE [None]
  - HYPOTHYROIDISM [None]
  - JOINT SWELLING [None]
  - LYMPHOPROLIFERATIVE DISORDER [None]
  - OEDEMA PERIPHERAL [None]
  - PAIN [None]
  - PELVIC FRACTURE [None]
  - PNEUMONIA BACTERIAL [None]
  - SOMNOLENCE [None]
  - STRESS SYMPTOMS [None]
  - SYNCOPE [None]
  - URINARY RETENTION [None]
  - URINARY TRACT INFECTION [None]
